FAERS Safety Report 14703817 (Version 1)
Quarter: 2018Q2

REPORT INFORMATION
  Report Type: Spontaneous
  Country: US (occurrence: US)
  Receive Date: 20180402
  Receipt Date: 20180402
  Transmission Date: 20180711
  Serious: No
  Sender: FDA-Public Use
  Company Number: US-PFIZER INC-2018130426

PATIENT
  Sex: Male

DRUGS (1)
  1. OXAPROZIN. [Suspect]
     Active Substance: OXAPROZIN
     Indication: RHEUMATOID ARTHRITIS
     Dosage: UNK
     Dates: start: 201209, end: 201301

REACTIONS (1)
  - Drug ineffective [Unknown]
